FAERS Safety Report 12993933 (Version 2)
Quarter: 2016Q4

REPORT INFORMATION
  Report Type: Spontaneous
  Country: ES (occurrence: ES)
  Receive Date: 20161202
  Receipt Date: 20161209
  Transmission Date: 20170207
  Serious: Yes (Hospitalization, Other)
  Sender: FDA-Public Use
  Company Number: ES-PFIZER INC-2016399241

PATIENT
  Age: 77 Year
  Sex: Male

DRUGS (8)
  1. AMLODIPINE [Concomitant]
     Active Substance: AMLODIPINE BESYLATE
     Dosage: 5 MG, UNK
  2. LEVOBUNOLOL [Concomitant]
     Active Substance: LEVOBUNOLOL
  3. HYDROCHLOROTHIAZIDE. [Concomitant]
     Active Substance: HYDROCHLOROTHIAZIDE
     Dosage: 12.5 MG, 1X/DAY
  4. BISOPROLOL [Concomitant]
     Active Substance: BISOPROLOL
     Dosage: 2.5 MG, 1X/DAY
  5. ALPRAZOLAM. [Concomitant]
     Active Substance: ALPRAZOLAM
     Dosage: 0.5 MG, 3X/DAY
  6. ADIRO [Concomitant]
     Active Substance: ASPIRIN
     Dosage: 150 MG, 1X/DAY
  7. SUTENT [Suspect]
     Active Substance: SUNITINIB MALATE
     Indication: CLEAR CELL RENAL CELL CARCINOMA
     Dosage: 50 MG, CYCLIC (DAILY DURING 4 WEEKS, WITH 2 WEEKS OFF)
     Dates: start: 20160708, end: 20160805
  8. LATANOPROST. [Concomitant]
     Active Substance: LATANOPROST

REACTIONS (10)
  - Gastric perforation [Unknown]
  - Melaena [Recovered/Resolved]
  - Presyncope [Recovered/Resolved]
  - Hair colour changes [Unknown]
  - Anaemia [Unknown]
  - Hyponatraemia [Unknown]
  - Dizziness [Recovered/Resolved]
  - Asthenia [Unknown]
  - Hypertension [Unknown]
  - Yellow skin [Unknown]

NARRATIVE: CASE EVENT DATE: 20160714
